FAERS Safety Report 7538761-5 (Version None)
Quarter: 2011Q2

REPORT INFORMATION
  Report Type: 
  Country: None (occurrence: None)
  Receive Date: 20110610
  Receipt Date: 20070921
  Transmission Date: 20111010
  Serious: Yes (Death, Hospitalization, Disabling, Other)
  Sender: FDA-Public Use
  Company Number: US-BAYER-200713450BWH

PATIENT
  Age: 71 Year
  Sex: Male
  Weight: 70 kg

DRUGS (21)
  1. VERAPAMIL [Concomitant]
     Dosage: 5 MG
     Route: 042
     Dates: start: 20050824
  2. NITROGLYCERIN [Concomitant]
     Dosage: 2.5 MG
     Route: 042
     Dates: start: 20050824
  3. TRASYLOL [Suspect]
     Indication: CORONARY ARTERY BYPASS
     Dosage: 1 ML TEST DOSE
     Route: 042
     Dates: start: 20050824, end: 20050824
  4. TRASYLOL [Suspect]
     Dosage: 50 ML/HOUR
     Route: 042
     Dates: start: 20050824, end: 20050824
  5. TRASYLOL [Suspect]
     Dosage: 200 ML LOADING DOSE
     Route: 042
     Dates: start: 20050824, end: 20050824
  6. TYLENOL REGULAR [Concomitant]
     Dosage: 650 MG EVERY 4 HOURS AS NEEDED
     Route: 048
  7. HYDROCHLOROTHIAZIDE [Concomitant]
     Dosage: 25 MG, QD
     Dates: start: 20050701
  8. ETODOLAC [Concomitant]
     Dosage: 400 MG, BID
     Route: 048
  9. OMEPRAZOLE [Concomitant]
     Dosage: 20 MG, QD
     Dates: start: 20050701
  10. LORAZEPAM [Concomitant]
     Dosage: 1 MG ONCE
     Route: 060
     Dates: start: 20050818, end: 20050818
  11. MIDAZOLAM [Concomitant]
  12. CEFAZOLIN [Concomitant]
     Dosage: 2 GMS
     Route: 042
     Dates: start: 20050824
  13. HEPARIN [Concomitant]
     Dosage: 20,000 UNITS
     Route: 042
     Dates: start: 20050824
  14. MANNITOL [Concomitant]
     Dosage: 50 ML (2 DOSES GIVEN)
     Route: 042
     Dates: start: 20050924
  15. XYLOCAINE [Concomitant]
     Dosage: 100 MG (2 DOSES)
     Route: 042
     Dates: start: 20050824
  16. TEMAZEPAM [Concomitant]
     Dosage: 15 MG AT HS AS NEEDED
     Route: 048
  17. ASPIRIN [Concomitant]
     Dosage: 81 MG, QD
     Dates: start: 20050701
  18. DILTIAZEM [Concomitant]
     Dosage: 240 MG, QD
     Route: 048
     Dates: start: 20050701
  19. PLAVIX [Concomitant]
     Dosage: 75 MG, QD
     Route: 048
     Dates: start: 20050818
  20. NITROGLYCERIN [Concomitant]
     Dosage: 4 MG AS NEEDED SUBLINGUAL
     Route: 060
  21. NEOSYNEPHRINE [Concomitant]
     Dosage: 10 MG
     Route: 042
     Dates: start: 20050824

REACTIONS (12)
  - ATRIAL FIBRILLATION [None]
  - RESPIRATORY FAILURE [None]
  - RENAL FAILURE [None]
  - CARDIO-RESPIRATORY ARREST [None]
  - ILL-DEFINED DISORDER [None]
  - GENERAL PHYSICAL HEALTH DETERIORATION [None]
  - INJURY [None]
  - ANXIETY [None]
  - CARDIAC ARREST [None]
  - HYPOXIA [None]
  - METABOLIC ACIDOSIS [None]
  - PAIN [None]
